FAERS Safety Report 11177692 (Version 3)
Quarter: 2015Q3

REPORT INFORMATION
  Report Type: Spontaneous
  Country: US (occurrence: US)
  Receive Date: 20150610
  Receipt Date: 20150701
  Transmission Date: 20151125
  Serious: No
  Sender: FDA-Public Use
  Company Number: US-PFIZER INC-2015192306

PATIENT
  Age: 68 Year
  Sex: Female
  Weight: 57 kg

DRUGS (2)
  1. PREMARIN [Suspect]
     Active Substance: ESTROGENS, CONJUGATED
     Dosage: 0.65 MG, 1X/DAY
     Dates: start: 201305
  2. PREMARIN [Suspect]
     Active Substance: ESTROGENS, CONJUGATED
     Indication: VULVOVAGINAL DRYNESS
     Dosage: 0.625 MG, 1X/DAY
     Dates: start: 20150516, end: 20150518

REACTIONS (3)
  - Drug ineffective [Recovered/Resolved]
  - Vulvovaginal discomfort [Recovered/Resolved]
  - Vulvovaginal pruritus [Recovered/Resolved]

NARRATIVE: CASE EVENT DATE: 20150517
